FAERS Safety Report 22215984 (Version 1)
Quarter: 2023Q2

REPORT INFORMATION
  Report Type: Spontaneous
  Country: US (occurrence: None)
  Receive Date: 20230417
  Receipt Date: 20230417
  Transmission Date: 20230721
  Serious: No
  Sender: FDA-Public Use
  Company Number: 2023A066974

PATIENT
  Sex: Male
  Weight: 93 kg

DRUGS (1)
  1. SYMBICORT [Suspect]
     Active Substance: BUDESONIDE\FORMOTEROL FUMARATE DIHYDRATE
     Indication: Asthma
     Dosage: 80/4.5MCG, 2 PUFFS TWICE DAILY
     Route: 055

REACTIONS (5)
  - Respiratory tract infection [Unknown]
  - Bronchitis [Unknown]
  - Cough [Unknown]
  - Sinus disorder [Unknown]
  - Lung disorder [Unknown]
